FAERS Safety Report 18271644 (Version 1)
Quarter: 2020Q3

REPORT INFORMATION
  Report Type: Spontaneous
  Country: JP (occurrence: JP)
  Receive Date: 20200916
  Receipt Date: 20200916
  Transmission Date: 20201103
  Serious: Yes (Other)
  Sender: FDA-Public Use
  Company Number: NVSJ2020JP008782

PATIENT

DRUGS (1)
  1. EXELON PATCH [Suspect]
     Active Substance: RIVASTIGMINE
     Indication: PRODUCT USED FOR UNKNOWN INDICATION
     Dosage: QD
     Route: 062

REACTIONS (5)
  - Condition aggravated [Unknown]
  - Fall [Unknown]
  - Loss of control of legs [Unknown]
  - Gait inability [Unknown]
  - Behaviour disorder [Unknown]
